FAERS Safety Report 11758446 (Version 2)
Quarter: 2016Q1

REPORT INFORMATION
  Report Type: Report from Study
  Country: FR (occurrence: FR)
  Receive Date: 20151120
  Receipt Date: 20160111
  Transmission Date: 20160525
  Serious: Yes (Death, Other)
  Sender: FDA-Public Use
  Company Number: FR-BRISTOL-MYERS SQUIBB COMPANY-BMS-2015-059215

PATIENT
  Age: 71 Year
  Sex: Male
  Weight: 48 kg

DRUGS (1)
  1. NIVOLUMAB [Suspect]
     Active Substance: NIVOLUMAB
     Indication: NON-SMALL CELL LUNG CANCER
     Dosage: 3 MG/KG, UNK
     Route: 065

REACTIONS (7)
  - Monoparesis [Unknown]
  - Alanine aminotransferase abnormal [Unknown]
  - Blood thyroid stimulating hormone increased [Unknown]
  - Blood alkaline phosphatase abnormal [Unknown]
  - Oedema [Unknown]
  - Aspartate aminotransferase abnormal [Unknown]
  - Myocardial infarction [Fatal]

NARRATIVE: CASE EVENT DATE: 20150827
